FAERS Safety Report 10530018 (Version 1)
Quarter: 2014Q4

REPORT INFORMATION
  Report Type: Spontaneous
  Country: US (occurrence: None)
  Receive Date: 20141020
  Receipt Date: 20141020
  Transmission Date: 20150528
  Serious: Yes (Other)
  Sender: FDA-Public Use
  Company Number: None

PATIENT
  Age: 14 Year
  Sex: Female
  Weight: 69.85 kg

DRUGS (1)
  1. MINOCYCLINE [Suspect]
     Active Substance: MINOCYCLINE\MINOCYCLINE HYDROCHLORIDE
     Indication: ACNE
     Dosage: 1 PILL
     Route: 048
     Dates: start: 20140822, end: 20141012

REACTIONS (5)
  - Retinal haemorrhage [None]
  - Benign intracranial hypertension [None]
  - Papilloedema [None]
  - Headache [None]
  - Visual impairment [None]

NARRATIVE: CASE EVENT DATE: 20141014
